FAERS Safety Report 16753430 (Version 5)
Quarter: 2020Q3

REPORT INFORMATION
  Report Type: Spontaneous
  Country: US (occurrence: US)
  Receive Date: 20190829
  Receipt Date: 20200811
  Transmission Date: 20201102
  Serious: No
  Sender: FDA-Public Use
  Company Number: US-HTU-2019US019201

PATIENT
  Sex: Male

DRUGS (4)
  1. VALCHLOR [Suspect]
     Active Substance: MECHLORETHAMINE
     Dosage: UNK, UNKNOWN
     Route: 061
  2. TRIAMCINOLONE ACETONIDE. [Concomitant]
     Active Substance: TRIAMCINOLONE ACETONIDE
  3. AMBIEN [Concomitant]
     Active Substance: ZOLPIDEM TARTRATE
     Indication: SLEEP DISORDER
  4. VALCHLOR [Suspect]
     Active Substance: MECHLORETHAMINE
     Indication: CUTANEOUS T-CELL LYMPHOMA
     Dosage: THIN FILM, SINGLE
     Route: 061
     Dates: start: 20190503

REACTIONS (7)
  - Pruritus [Recovering/Resolving]
  - Dermatitis [Unknown]
  - Skin discomfort [Not Recovered/Not Resolved]
  - Sleep disorder [Unknown]
  - Erythema [Unknown]
  - Skin irritation [Unknown]
  - Skin discolouration [Recovering/Resolving]
